FAERS Safety Report 10504271 (Version 1)
Quarter: 2014Q4

REPORT INFORMATION
  Report Type: Spontaneous
  Country: US (occurrence: None)
  Receive Date: 20141007
  Receipt Date: 20141007
  Transmission Date: 20150528
  Serious: No
  Sender: FDA-Public Use
  Company Number: None

PATIENT
  Age: 60 Year
  Sex: Female
  Weight: 58.97 kg

DRUGS (28)
  1. BLUE GREEN ALGAE [Concomitant]
  2. MAITAKE MUSHROOM [Concomitant]
     Active Substance: MAITAKE
  3. SHITAKE MUSHROOM [Concomitant]
  4. SEA BUCKTHORN OIL [Concomitant]
  5. STINGING NETTLE [Concomitant]
     Active Substance: HERBALS
  6. TOCOTRIENTOL (VIT E) [Concomitant]
  7. ALIGN PROBIOTIC [Concomitant]
  8. BORAGE OIL (GLA) [Concomitant]
  9. SPIRULINA [Concomitant]
     Active Substance: SPIRULINA
  10. QUERCETIN/VIT C [Concomitant]
  11. VALTREX [Concomitant]
     Active Substance: VALACYCLOVIR HYDROCHLORIDE
  12. L-LYSINE [Concomitant]
     Active Substance: LYSINE
  13. MAGNESIUM [Concomitant]
     Active Substance: MAGNESIUM
  14. NETTLES [Concomitant]
  15. SYNTHROID [Suspect]
     Active Substance: LEVOTHYROXINE SODIUM
     Indication: AUTOIMMUNE THYROIDITIS
     Dosage: 1/2 PILL; ALTERNATE DAYS
     Route: 048
     Dates: start: 20140822, end: 20140911
  16. CALCIUM [Concomitant]
     Active Substance: CALCIUM
  17. K-2 [Concomitant]
  18. LING ZHI REISHI MUSHROOM [Concomitant]
  19. ROYAL JELLY [Concomitant]
     Active Substance: ROYAL JELLY
  20. CHOLEST-OFF [Concomitant]
  21. D3 [Concomitant]
     Active Substance: 25-HYDROXYCHOLECALCIFEROL, 5-TRANS-
  22. OIL OF OREGANO [Concomitant]
  23. ASTRAGALUS GUMMIFER [Concomitant]
     Active Substance: UNSPECIFIED INGREDIENT
  24. FISH OIL [Concomitant]
     Active Substance: FISH OIL
  25. ECHINACEA [Concomitant]
     Active Substance: ECHINACEA, UNSPECIFIED
  26. ASHWAGANDHA [Concomitant]
  27. CHLORELLA [Concomitant]
  28. ST. JOHN^S WORT [Concomitant]
     Active Substance: ST. JOHN^S WORT

REACTIONS (21)
  - Arthralgia [None]
  - Weight increased [None]
  - Exercise tolerance decreased [None]
  - Memory impairment [None]
  - Visual acuity reduced [None]
  - Dissociation [None]
  - Malaise [None]
  - Muscle fatigue [None]
  - Inflammation [None]
  - Injury [None]
  - Rash [None]
  - Depression [None]
  - Dry skin [None]
  - Thinking abnormal [None]
  - Fatigue [None]
  - Faeces hard [None]
  - Oral herpes [None]
  - Aphasia [None]
  - Dysgraphia [None]
  - Toothache [None]
  - Insomnia [None]

NARRATIVE: CASE EVENT DATE: 20140822
